FAERS Safety Report 5989067-7 (Version None)
Quarter: 2008Q4

REPORT INFORMATION
  Report Type: 
  Country: None (occurrence: None)
  Receive Date: 20081209
  Receipt Date: 20081209
  Transmission Date: 20090506
  Serious: Yes (Disabling)
  Sender: FDA-Public Use
  Company Number: None

PATIENT
  Sex: Male
  Weight: 136.0791 kg

DRUGS (1)
  1. PROAIR HFA [Suspect]
     Indication: ASTHMA
     Dosage: 1 TO 2 PUFFS TWICE A DAY PO
     Route: 048
     Dates: start: 20081101, end: 20081208

REACTIONS (2)
  - HAEMOPTYSIS [None]
  - PRODUCT QUALITY ISSUE [None]
